FAERS Safety Report 4599794-4 (Version None)
Quarter: 2005Q1

REPORT INFORMATION
  Report Type: 
  Country: None (occurrence: None)
  Receive Date: 20050304
  Receipt Date: 20050304
  Transmission Date: 20050727
  Serious: Yes (Hospitalization)
  Sender: FDA-Public Use
  Company Number: None

PATIENT
  Sex: Male
  Weight: 78.0187 kg

DRUGS (2)
  1. TAXOTERE [Suspect]
     Indication: LUNG NEOPLASM MALIGNANT
     Dosage: 24MG/M2  3WK ON 1 WK OFF  INTRAVENOUS
     Route: 042
     Dates: start: 20041118, end: 20050207
  2. IRESSA [Suspect]
     Indication: LUNG NEOPLASM MALIGNANT
     Dosage: DAILY ORAL
     Route: 048
     Dates: start: 20041118, end: 20050207

REACTIONS (4)
  - DIARRHOEA [None]
  - PNEUMATOSIS CYSTOIDES INTESTINALIS [None]
  - RESPIRATORY FAILURE [None]
  - VOMITING [None]
